FAERS Safety Report 6739863-3 (Version None)
Quarter: 2010Q2

REPORT INFORMATION
  Report Type: 
  Country: None (occurrence: None)
  Receive Date: 20100525
  Receipt Date: 20100520
  Transmission Date: 20101027
  Serious: Yes (Death, Hospitalization, Other)
  Sender: FDA-Public Use
  Company Number: PHHY2010BR32850

PATIENT
  Sex: Male

DRUGS (1)
  1. EXELON [Suspect]
     Indication: DEMENTIA ALZHEIMER'S TYPE
     Dosage: 18MG/10CM2 , 1 PATCH PER DAY
     Route: 062
     Dates: start: 20090101

REACTIONS (7)
  - DEMENTIA ALZHEIMER'S TYPE [None]
  - GASTRIC INFECTION [None]
  - HEPATIC INFECTION [None]
  - KIDNEY INFECTION [None]
  - MULTI-ORGAN FAILURE [None]
  - PNEUMONIA [None]
  - SEPTIC SHOCK [None]
